FAERS Safety Report 7352548-8 (Version None)
Quarter: 2011Q1

REPORT INFORMATION
  Report Type: 
  Country: None (occurrence: None)
  Receive Date: 20110315
  Receipt Date: 20110304
  Transmission Date: 20110831
  Serious: Yes (Other)
  Sender: FDA-Public Use
  Company Number: CA-BAXTER-2011BH006402

PATIENT

DRUGS (1)
  1. HEPARIN [Suspect]
     Indication: ANTICOAGULANT THERAPY
     Route: 065

REACTIONS (1)
  - CEREBROVASCULAR ACCIDENT [None]
